FAERS Safety Report 8388662-8 (Version None)
Quarter: 2012Q2

REPORT INFORMATION
  Report Type: 
  Country: None (occurrence: None)
  Receive Date: 20120525
  Receipt Date: 20120518
  Transmission Date: 20120825
  Serious: Yes (Hospitalization, Disabling, Other)
  Sender: FDA-Public Use
  Company Number: US-MERCK-1103USA00839

PATIENT
  Age: 66 Year
  Sex: Female
  Weight: 81 kg

DRUGS (10)
  1. ALENDRONATE SODIUM [Suspect]
     Route: 048
     Dates: start: 20090101, end: 20090301
  2. FOSAMAX [Suspect]
     Route: 048
     Dates: start: 20010101, end: 20080301
  3. FOSAMAX [Suspect]
     Indication: OSTEOPOROSIS
     Route: 048
     Dates: start: 19990401, end: 20010101
  4. VITAMIN D (UNSPECIFIED) [Concomitant]
     Route: 065
     Dates: start: 19990101, end: 20100101
  5. ALENDRONATE SODIUM [Suspect]
     Route: 048
     Dates: start: 20090101, end: 20090301
  6. FOSAMAX [Suspect]
     Indication: OSTEOPENIA
     Route: 048
     Dates: start: 19990401, end: 20010101
  7. FOSAMAX [Suspect]
     Route: 048
     Dates: start: 20010101, end: 20080301
  8. ALENDRONATE SODIUM [Suspect]
     Indication: OSTEOPENIA
     Route: 048
     Dates: start: 20080301, end: 20081101
  9. ALENDRONATE SODIUM [Suspect]
     Indication: OSTEOPOROSIS
     Route: 048
     Dates: start: 20080301, end: 20081101
  10. CALCIUM (UNSPECIFIED) [Concomitant]
     Route: 065
     Dates: start: 19850101

REACTIONS (13)
  - FEMUR FRACTURE [None]
  - HYPERLIPIDAEMIA [None]
  - COLON ADENOMA [None]
  - FALL [None]
  - DIVERTICULUM INTESTINAL [None]
  - CALCULUS URETERIC [None]
  - HYPOAESTHESIA [None]
  - NEPHROLITHIASIS [None]
  - HAEMORRHOIDS [None]
  - LOW TURNOVER OSTEOPATHY [None]
  - UPPER LIMB FRACTURE [None]
  - HUMERUS FRACTURE [None]
  - VITAMIN D DEFICIENCY [None]
